FAERS Safety Report 25700913 (Version 2)
Quarter: 2025Q3

REPORT INFORMATION
  Report Type: Spontaneous
  Country: EU (occurrence: EU)
  Receive Date: 20250819
  Receipt Date: 20250828
  Transmission Date: 20251020
  Serious: Yes (Hospitalization)
  Sender: PFIZER
  Company Number: EU-PFIZER INC-PV202500099496

PATIENT
  Age: 6 Month
  Sex: Male

DRUGS (3)
  1. METHYLPREDNISOLONE [Suspect]
     Active Substance: METHYLPREDNISOLONE
     Indication: Pneumonia
     Dosage: 1 MG/KG, DAILY
  2. METHYLPREDNISOLONE [Suspect]
     Active Substance: METHYLPREDNISOLONE
     Dosage: 1.5 MG/KG, DAILY
  3. BETAMETHASONE [Suspect]
     Active Substance: BETAMETHASONE
     Indication: Pneumonia
     Dosage: 0.1 MG/KG, DAILY
     Route: 048

REACTIONS (1)
  - Hypertrophic cardiomyopathy [Recovered/Resolved]
